FAERS Safety Report 17128657 (Version 1)
Quarter: 2019Q4

REPORT INFORMATION
  Report Type: Spontaneous
  Country: US (occurrence: US)
  Receive Date: 20191209
  Receipt Date: 20191209
  Transmission Date: 20200122
  Serious: No
  Sender: FDA-Public Use
  Company Number: US-TEVA-2019-US-1146354

PATIENT
  Age: 65 Year
  Sex: Male

DRUGS (5)
  1. FREMANEZUMAB [Suspect]
     Active Substance: FREMANEZUMAB
     Indication: MIGRAINE
     Route: 065
     Dates: start: 201811
  2. ATORVASTATIN [Concomitant]
     Active Substance: ATORVASTATIN
     Indication: HYPERLIPIDAEMIA
     Route: 065
  3. ASPIRIN. [Concomitant]
     Active Substance: ASPIRIN
     Route: 065
  4. CANDESARTAN. [Concomitant]
     Active Substance: CANDESARTAN
     Indication: HYPERTENSION
     Route: 065
  5. EZETIMIBE. [Concomitant]
     Active Substance: EZETIMIBE
     Indication: HYPERLIPIDAEMIA
     Route: 065

REACTIONS (1)
  - Raynaud^s phenomenon [Unknown]
